FAERS Safety Report 12857126 (Version 1)
Quarter: 2016Q4

REPORT INFORMATION
  Report Type: Not Available
  Country: None (occurrence: US)
  Receive Date: 20161018
  Receipt Date: 20161018
  Transmission Date: 20170207
  Serious: No
  Sender: FDA-Public Use
  Company Number: US-AKORN-20425

PATIENT
  Age: 59 Year
  Sex: Female

DRUGS (1)
  1. PROMETHAZINE HCL + CODEINE SYRUP [Suspect]
     Active Substance: CODEINE PHOSPHATE\PROMETHAZINE HYDROCHLORIDE

REACTIONS (6)
  - Burning sensation [None]
  - Product substitution issue [None]
  - Nausea [None]
  - Cough [None]
  - Product deposit [None]
  - Drug intolerance [None]
